FAERS Safety Report 6579476-X (Version None)
Quarter: 2010Q1

REPORT INFORMATION
  Report Type: 
  Country: None (occurrence: None)
  Receive Date: 20100209
  Receipt Date: 20100209
  Transmission Date: 20100710
  Serious: Yes (Hospitalization)
  Sender: FDA-Public Use
  Company Number: None

PATIENT
  Age: 42 Year
  Sex: Male

DRUGS (2)
  1. PROLIXIN DECANOATE [Suspect]
     Dosage: 37.5 Q2W IM
     Route: 030
  2. HALDOL [Suspect]
     Dosage: 10MG BID PO
     Route: 048

REACTIONS (3)
  - CONFUSIONAL STATE [None]
  - DRY MOUTH [None]
  - HALLUCINATIONS, MIXED [None]
